FAERS Safety Report 17829666 (Version 8)
Quarter: 2021Q2

REPORT INFORMATION
  Report Type: Report from Study
  Country: US (occurrence: US)
  Receive Date: 20200527
  Receipt Date: 20210409
  Transmission Date: 20210717
  Serious: No
  Sender: FDA-Public Use
  Company Number: US-BIOVITRUM-2020US0733

PATIENT
  Age: 54 Year
  Sex: Male

DRUGS (2)
  1. KINERET [Suspect]
     Active Substance: ANAKINRA
     Indication: IDIOPATHIC URTICARIA
     Route: 058
     Dates: start: 20190805
  2. KINERET [Suspect]
     Active Substance: ANAKINRA
     Route: 058
     Dates: start: 20190508

REACTIONS (10)
  - Intentional product misuse [Unknown]
  - Seasonal allergy [Unknown]
  - Illness [Unknown]
  - Nasopharyngitis [Unknown]
  - Infection [Unknown]
  - Blood cholesterol abnormal [Unknown]
  - Product dose omission issue [Unknown]
  - Asthenia [Unknown]
  - Throat irritation [Unknown]
  - Off label use [Not Recovered/Not Resolved]

NARRATIVE: CASE EVENT DATE: 20190508
